FAERS Safety Report 15975747 (Version 1)
Quarter: 2019Q1

REPORT INFORMATION
  Report Type: Report from Study
  Country: US (occurrence: US)
  Receive Date: 20190218
  Receipt Date: 20190218
  Transmission Date: 20190418
  Serious: Yes (Hospitalization)
  Sender: FDA-Public Use
  Company Number: US-BAYER-2019-031698

PATIENT
  Age: 62 Year
  Sex: Male

DRUGS (1)
  1. NEXAVAR [Suspect]
     Active Substance: SORAFENIB
     Indication: HEPATOCELLULAR CARCINOMA
     Dosage: 400 MG, BID
     Route: 048
     Dates: start: 20190116

REACTIONS (8)
  - Hospitalisation [None]
  - Abdominal distension [None]
  - Nausea [None]
  - Dysgeusia [None]
  - Fatigue [None]
  - Oedema [None]
  - Decreased appetite [None]
  - Weight decreased [None]
